FAERS Safety Report 9380925 (Version 2)
Quarter: 2013Q3

REPORT INFORMATION
  Report Type: Spontaneous
  Country: FR (occurrence: FR)
  Receive Date: 20130703
  Receipt Date: 20130704
  Transmission Date: 20140515
  Serious: Yes (Other)
  Sender: FDA-Public Use
  Company Number: FR-ROCHE-1242333

PATIENT
  Age: 46 Year
  Sex: Female
  Weight: 66 kg

DRUGS (2)
  1. AVASTIN [Suspect]
     Indication: LUNG ADENOCARCINOMA
     Route: 042
  2. PLAQUENIL [Suspect]
     Route: 048

REACTIONS (1)
  - Uveitis [Not Recovered/Not Resolved]
